FAERS Safety Report 7533848-5 (Version None)
Quarter: 2011Q2

REPORT INFORMATION
  Report Type: 
  Country: None (occurrence: None)
  Receive Date: 20110608
  Receipt Date: 20060501
  Transmission Date: 20111010
  Serious: Yes (Hospitalization)
  Sender: FDA-Public Use
  Company Number: PHNR2006AU00722

PATIENT
  Sex: Female

DRUGS (2)
  1. CLOZAPINE [Suspect]
  2. CLOZAPINE [Suspect]
     Dosage: 12.5-750 MG DAILY
     Route: 048
     Dates: start: 20041022, end: 20060429

REACTIONS (1)
  - TROPONIN INCREASED [None]
